FAERS Safety Report 6718457-X (Version None)
Quarter: 2010Q2

REPORT INFORMATION
  Report Type: 
  Country: None (occurrence: None)
  Receive Date: 20100503
  Receipt Date: 20100420
  Transmission Date: 20101027
  Serious: Yes (Other)
  Sender: FDA-Public Use
  Company Number: 10-000588

PATIENT
  Age: 15 Year
  Sex: Female
  Weight: 45.4 kg

DRUGS (4)
  1. DORYX [Suspect]
     Indication: ACNE
     Dosage: 75 MG, QD, ORAL, 75 MG, QOD, ORAL
     Route: 048
     Dates: start: 20090501, end: 20100101
  2. DORYX [Suspect]
     Indication: ACNE
     Dosage: 75 MG, QD, ORAL, 75 MG, QOD, ORAL
     Route: 048
     Dates: start: 20100101, end: 20100401
  3. CELEXA [Concomitant]
  4. ADDERALL 10 [Concomitant]

REACTIONS (2)
  - PAPILLOEDEMA [None]
  - VISUAL ACUITY REDUCED [None]
